FAERS Safety Report 7006259-9 (Version None)
Quarter: 2010Q3

REPORT INFORMATION
  Report Type: 
  Country: None (occurrence: None)
  Receive Date: 20100921
  Receipt Date: 20100914
  Transmission Date: 20110219
  Serious: No
  Sender: FDA-Public Use
  Company Number: US-PFIZER INC-2009227062

PATIENT
  Sex: Female

DRUGS (3)
  1. ZOLOFT [Suspect]
     Indication: DEPRESSION
     Dosage: 100 MG, UNK
  2. ZOLOFT [Suspect]
     Dosage: 50 MG, 1X/DAY
     Dates: start: 20090101
  3. CELEBREX [Suspect]

REACTIONS (2)
  - ALOPECIA [None]
  - WEIGHT INCREASED [None]
